FAERS Safety Report 24291155 (Version 1)
Quarter: 2024Q3

REPORT INFORMATION
  Report Type: Spontaneous
  Country: US (occurrence: US)
  Receive Date: 20240906
  Receipt Date: 20240906
  Transmission Date: 20241016
  Serious: No
  Sender: AVERITAS
  Company Number: US-GRUNENTHAL-2024-124245

PATIENT
  Age: 73 Year
  Sex: Male

DRUGS (1)
  1. QUTENZA [Suspect]
     Active Substance: CAPSAICIN
     Indication: Post herpetic neuralgia
     Dosage: 1 DOSAGE FORM, ONCE
     Route: 061
     Dates: start: 20240812, end: 20240812

REACTIONS (1)
  - Application site vesicles [Unknown]
